FAERS Safety Report 7761198-0 (Version None)
Quarter: 2011Q3

REPORT INFORMATION
  Report Type: 
  Country: None (occurrence: None)
  Receive Date: 20110920
  Receipt Date: 20110908
  Transmission Date: 20111222
  Serious: Yes (Hospitalization)
  Sender: FDA-Public Use
  Company Number: FR-ELI_LILLY_AND_COMPANY-FR201109001906

PATIENT

DRUGS (7)
  1. ZOLPIDEM [Concomitant]
     Dosage: UNK
     Route: 064
     Dates: end: 20110628
  2. CYMBALTA [Suspect]
     Dosage: UNK UNK, UNKNOWN
     Route: 064
  3. MORPHINE SULFATE [Concomitant]
     Dosage: 40 MG, QD
     Route: 064
     Dates: end: 20110628
  4. XANAX [Concomitant]
     Dosage: 0.5 MG, SINGLE
  5. IMURAN [Concomitant]
     Dosage: UNK
     Route: 064
     Dates: end: 20110628
  6. OMEPRAZOLE [Concomitant]
     Dosage: UNK
     Route: 064
     Dates: end: 20110628
  7. PREDNISOLONE [Concomitant]
     Dosage: UNK
     Route: 064
     Dates: end: 20110628

REACTIONS (4)
  - MATERNAL EXPOSURE DURING PREGNANCY [None]
  - HYPOGLYCAEMIA [None]
  - RESPIRATORY DISTRESS [None]
  - FEEDING DISORDER NEONATAL [None]
